FAERS Safety Report 10899987 (Version 11)
Quarter: 2016Q4

REPORT INFORMATION
  Report Type: Report from Study
  Country: CA (occurrence: CA)
  Receive Date: 20150310
  Receipt Date: 20161206
  Transmission Date: 20170206
  Serious: Yes (Other)
  Sender: FDA-Public Use
  Company Number: CA-ROCHE-1532867

PATIENT
  Age: 54 Year
  Sex: Female
  Weight: 68 kg

DRUGS (3)
  1. ACTEMRA [Suspect]
     Active Substance: TOCILIZUMAB
     Indication: RHEUMATOID ARTHRITIS
     Route: 042
     Dates: start: 20131021
  2. PLAQUENIL [Concomitant]
     Active Substance: HYDROXYCHLOROQUINE SULFATE
  3. METHOTREXATE. [Concomitant]
     Active Substance: METHOTREXATE

REACTIONS (12)
  - Haemarthrosis [Unknown]
  - Oropharyngeal pain [Not Recovered/Not Resolved]
  - Fall [Unknown]
  - Hordeolum [Recovered/Resolved]
  - Cough [Not Recovered/Not Resolved]
  - Heart rate decreased [Unknown]
  - Oxygen saturation decreased [Unknown]
  - Infusion related reaction [Unknown]
  - Neoplasm malignant [Unknown]
  - Ligament injury [Unknown]
  - Wound [Not Recovered/Not Resolved]
  - Oxygen saturation decreased [Unknown]

NARRATIVE: CASE EVENT DATE: 20150131
